FAERS Safety Report 9729913 (Version 1)
Quarter: 2013Q4

REPORT INFORMATION
  Report Type: Report from Study
  Country: DE (occurrence: DE)
  Receive Date: 20131204
  Receipt Date: 20131204
  Transmission Date: 20140711
  Serious: Yes (Death)
  Sender: FDA-Public Use
  Company Number: DE-CELGENEUS-062-21660-13114243

PATIENT
  Sex: Female

DRUGS (2)
  1. ABRAXANE [Suspect]
     Indication: BREAST CANCER METASTATIC
     Dosage: 70 MILLIGRAM/SQ. METER
     Route: 065
     Dates: start: 20130405
  2. ABRAXANE [Suspect]
     Dosage: 70 MILLIGRAM/SQ. METER
     Route: 065
     Dates: start: 20130524

REACTIONS (3)
  - Death [Fatal]
  - Neutropenia [Recovered/Resolved]
  - Transaminases increased [Unknown]
